FAERS Safety Report 12363122 (Version 1)
Quarter: 2016Q2

REPORT INFORMATION
  Report Type: Spontaneous
  Country: US (occurrence: US)
  Receive Date: 20160512
  Receipt Date: 20160512
  Transmission Date: 20160815
  Serious: No
  Sender: FDA-Public Use
  Company Number: US-UCBSA-2015008412

PATIENT
  Age: 51 Year
  Sex: Male
  Weight: 108.84 kg

DRUGS (1)
  1. CIMZIA [Suspect]
     Active Substance: CERTOLIZUMAB PEGOL
     Indication: RHEUMATOID ARTHRITIS
     Dosage: 200 MG, EV 2 WEEKS(QOW) (EVERY OTHER WEEK)
     Route: 058
     Dates: start: 201407, end: 201508

REACTIONS (4)
  - Arthralgia [Unknown]
  - Eye pruritus [Recovered/Resolved]
  - Treatment failure [Unknown]
  - Nausea [Unknown]

NARRATIVE: CASE EVENT DATE: 201408
